FAERS Safety Report 10240801 (Version 1)
Quarter: 2014Q2

REPORT INFORMATION
  Report Type: Spontaneous
  Country: US (occurrence: US)
  Receive Date: 20140617
  Receipt Date: 20140617
  Transmission Date: 20141212
  Serious: No
  Sender: FDA-Public Use
  Company Number: US-PFIZER INC-2014163983

PATIENT
  Age: 85 Year
  Sex: Male
  Weight: 68.03 kg

DRUGS (1)
  1. DETROL LA [Suspect]
     Indication: HYPERTONIC BLADDER
     Dosage: UNK
     Dates: start: 2009, end: 2010

REACTIONS (1)
  - Drug ineffective [Unknown]
